FAERS Safety Report 9756587 (Version 1)
Quarter: 2013Q4

REPORT INFORMATION
  Report Type: Spontaneous
  Country: US (occurrence: US)
  Receive Date: 20131213
  Receipt Date: 20131213
  Transmission Date: 20140711
  Serious: No
  Sender: FDA-Public Use
  Company Number: US-GLAXOSMITHKLINE-A1047327A

PATIENT
  Age: 37 Year
  Sex: Female
  Weight: 59.41 kg

DRUGS (5)
  1. NICOTINE [Suspect]
     Indication: SMOKING CESSATION THERAPY
     Route: 062
  2. CHANTIX [Concomitant]
     Indication: SMOKING CESSATION THERAPY
     Route: 065
     Dates: start: 2013, end: 2013
  3. LOSARTAN [Concomitant]
     Indication: HYPERTENSION
     Route: 065
  4. LORTAB [Concomitant]
     Indication: PAIN
     Route: 065
  5. PLAQUENIL [Concomitant]
     Indication: SYSTEMIC LUPUS ERYTHEMATOSUS
     Route: 065

REACTIONS (3)
  - Drug hypersensitivity [Unknown]
  - Rash generalised [Unknown]
  - Pruritus [Unknown]
